FAERS Safety Report 4355983-5 (Version None)
Quarter: 2004Q2

REPORT INFORMATION
  Report Type: 
  Country: None (occurrence: None)
  Receive Date: 20040507
  Receipt Date: 20040507
  Transmission Date: 20050107
  Serious: Yes (Other)
  Sender: FDA-Public Use
  Company Number: None

PATIENT
  Age: 44 Year
  Sex: Male
  Weight: 107.0489 kg

DRUGS (2)
  1. MAJOR TWICE A DAY NASAL SPRAY [Suspect]
     Indication: BRONCHITIS
  2. MAJOR TWICE A DAY NASAL SPRAY [Suspect]
     Indication: SINUSITIS

REACTIONS (2)
  - COUGH [None]
  - PYREXIA [None]
